FAERS Safety Report 7516748-6 (Version None)
Quarter: 2011Q2

REPORT INFORMATION
  Report Type: 
  Country: None (occurrence: None)
  Receive Date: 20110526
  Receipt Date: 20110526
  Transmission Date: 20111010
  Serious: Yes (Hospitalization)
  Sender: FDA-Public Use
  Company Number: None

PATIENT
  Age: 27 Year
  Sex: Female
  Weight: 65.7716 kg

DRUGS (1)
  1. ABILIFY [Suspect]
     Indication: PAIN
     Dosage: 1TAB Q4D AS PO
     Route: 048
     Dates: start: 20110519, end: 20110519

REACTIONS (4)
  - LOSS OF CONSCIOUSNESS [None]
  - HEADACHE [None]
  - MOVEMENT DISORDER [None]
  - PHYSICAL ABUSE [None]
